FAERS Safety Report 7820879-0 (Version None)
Quarter: 2011Q4

REPORT INFORMATION
  Report Type: 
  Country: None (occurrence: None)
  Receive Date: 20111018
  Receipt Date: 20111011
  Transmission Date: 20120403
  Serious: Yes (Hospitalization)
  Sender: FDA-Public Use
  Company Number: US-GLAXOSMITHKLINE-A0893389A

PATIENT
  Sex: Female

DRUGS (7)
  1. PREMARIN [Concomitant]
  2. LEVOTHYROXINE SODIUM [Concomitant]
  3. AVANDAMET [Suspect]
     Indication: DIABETES MELLITUS
     Route: 048
     Dates: start: 20080101, end: 20100101
  4. TRICOR [Concomitant]
  5. PRILOSEC [Concomitant]
  6. LIPITOR [Concomitant]
  7. METOPROLOL TARTRATE [Concomitant]

REACTIONS (5)
  - CARDIOVASCULAR DISORDER [None]
  - CHEST PAIN [None]
  - CARDIAC FAILURE [None]
  - WEIGHT INCREASED [None]
  - CHEST DISCOMFORT [None]
